FAERS Safety Report 4913846-8 (Version None)
Quarter: 2006Q1

REPORT INFORMATION
  Report Type: 
  Country: None (occurrence: None)
  Receive Date: 20060216
  Receipt Date: 20050823
  Transmission Date: 20060701
  Serious: Yes (Death, Hospitalization)
  Sender: FDA-Public Use
  Company Number: US-MERCK-0508USA03961

PATIENT
  Age: 87 Year
  Sex: Male
  Weight: 73 kg

DRUGS (27)
  1. AMBIEN [Concomitant]
     Route: 065
  2. ISOSORBIDE DINITRATE [Concomitant]
     Route: 065
  3. TEMAZEPAM [Concomitant]
     Route: 065
  4. BENICAR [Concomitant]
     Route: 065
  5. CLONIDINE [Concomitant]
     Route: 065
  6. LEVAQUIN [Concomitant]
     Route: 065
  7. CLARITIN [Concomitant]
     Route: 065
  8. HYDROCHLOROTHIAZIDE AND TRIAMTERENE [Concomitant]
     Route: 065
  9. PCE [Concomitant]
     Route: 065
  10. VICOPROFEN [Concomitant]
     Route: 065
  11. [THERAPY UNSPECIFIED] [Concomitant]
     Route: 065
     Dates: start: 20010116, end: 20040924
  12. VIOXX [Suspect]
     Indication: PAIN
     Route: 048
     Dates: start: 20010116, end: 20040924
  13. LIPITOR [Concomitant]
     Indication: BLOOD CHOLESTEROL INCREASED
     Route: 065
     Dates: start: 20010116
  14. BAYCOL [Concomitant]
     Route: 065
  15. NORVASC [Concomitant]
     Route: 065
  16. PRAVACHOL [Concomitant]
     Route: 065
  17. BIAXIN [Concomitant]
     Route: 065
  18. GUIATUSS [Concomitant]
     Route: 065
  19. AVELOX [Concomitant]
     Route: 065
  20. BENZONATATE [Concomitant]
     Route: 065
  21. SOTALOL HYDROCHLORIDE [Concomitant]
     Route: 065
  22. HYDROCHLOROTHIAZIDE [Concomitant]
     Route: 065
  23. ZITHROMAX [Concomitant]
     Route: 065
  24. LISINOPRIL [Concomitant]
     Route: 065
  25. METOPROLOL [Concomitant]
     Route: 065
  26. RISPERDAL [Concomitant]
     Route: 065
  27. HYDRALAZINE [Concomitant]
     Route: 065

REACTIONS (11)
  - ARRHYTHMIA [None]
  - ARTERIOSCLEROSIS [None]
  - CARDIAC FAILURE CONGESTIVE [None]
  - CEREBROVASCULAR ACCIDENT [None]
  - CHEST PAIN [None]
  - DEATH [None]
  - DYSPEPSIA [None]
  - HEART RATE IRREGULAR [None]
  - HYPERTENSION [None]
  - MYOCARDIAL INFARCTION [None]
  - RENAL DISORDER [None]
